FAERS Safety Report 7368436-7 (Version None)
Quarter: 2011Q1

REPORT INFORMATION
  Report Type: 
  Country: None (occurrence: None)
  Receive Date: 20110311
  Receipt Date: 20110301
  Transmission Date: 20110831
  Serious: Yes (Hospitalization, Other)
  Sender: FDA-Public Use
  Company Number: 028450

PATIENT
  Sex: Male
  Weight: 76.5 kg

DRUGS (4)
  1. SYNTHROID [Concomitant]
  2. TRICOR [Concomitant]
  3. SIMVASTATIN [Concomitant]
  4. KEPPRA [Suspect]
     Indication: CONVULSION
     Dosage: (1000 MG BID ORAL)
     Route: 048

REACTIONS (5)
  - THROMBOCYTOPENIA [None]
  - HAEMOGLOBIN DECREASED [None]
  - HAEMATOCRIT DECREASED [None]
  - OVERDOSE [None]
  - CONVULSION [None]
